FAERS Safety Report 8661478 (Version 8)
Quarter: 2013Q1

REPORT INFORMATION
  Report Type: Report from Study
  Country: CH (occurrence: CH)
  Receive Date: 20120712
  Receipt Date: 20130128
  Transmission Date: 20140127
  Serious: Yes (Hospitalization, Other)
  Sender: FDA-Public Use
  Company Number: CH-CELGENEUS-151-21880-12062715

PATIENT
  Age: 67 Year
  Sex: Female
  Weight: 64 kg

DRUGS (11)
  1. REVLIMID [Suspect]
     Indication: ACUTE MYELOID LEUKAEMIA
     Dosage: 20 MILLIGRAM
     Route: 048
     Dates: start: 20120522
  2. REVLIMID [Suspect]
     Dosage: 20 MILLIGRAM
     Route: 048
     Dates: start: 20120622, end: 20120709
  3. DAUNOMYCIN [Suspect]
     Indication: ACUTE MYELOID LEUKAEMIA
     Dosage: 78.3 MILLIGRAM
     Route: 041
     Dates: start: 20120522
  4. DAUNOMYCIN [Suspect]
     Route: 041
     Dates: start: 20120622
  5. CYTARABINE [Suspect]
     Indication: ACUTE MYELOID LEUKAEMIA
     Dosage: 348 MILLIGRAM
     Route: 041
     Dates: start: 20120522
  6. CYTARABINE [Suspect]
     Dosage: 3440 MILLIGRAM
     Route: 041
     Dates: start: 20120622, end: 20120627
  7. NOXAFIL [Concomitant]
     Indication: PROPHYLAXIS
     Dosage: 40 MILLIGRAM
     Route: 048
     Dates: start: 20120527
  8. KCL [Concomitant]
     Indication: HYPOCALCAEMIA
     Dosage: 30 MILLIMOLE
     Route: 048
     Dates: start: 20120614
  9. VALTREX [Concomitant]
     Indication: PROPHYLAXIS
     Dosage: 500 MILLIGRAM
     Route: 048
     Dates: start: 20120524
  10. TEMESTA [Concomitant]
     Indication: ANXIETY
     Route: 048
     Dates: start: 20120630, end: 20120715
  11. SEROPRAM [Concomitant]
     Indication: DEPRESSION
     Route: 048
     Dates: start: 20120717, end: 20120717

REACTIONS (3)
  - Haemothorax [Recovered/Resolved]
  - Joint swelling [Recovered/Resolved]
  - Abscess neck [Recovered/Resolved]
